FAERS Safety Report 4385445-0 (Version None)
Quarter: 2004Q2

REPORT INFORMATION
  Report Type: 
  Country: None (occurrence: None)
  Receive Date: 20040622
  Receipt Date: 20040611
  Transmission Date: 20050107
  Serious: Yes (Death)
  Sender: FDA-Public Use
  Company Number: S04-USA-02762-01

PATIENT
  Age: 28 Year
  Sex: Female

DRUGS (5)
  1. LEXAPRO [Suspect]
     Indication: DEPRESSION
  2. AMBIEN [Concomitant]
  3. VALIUM [Concomitant]
  4. WELLBUTRIN [Concomitant]
  5. THYROID TAB [Concomitant]

REACTIONS (6)
  - COMPLETED SUICIDE [None]
  - GUN SHOT WOUND [None]
  - INSOMNIA [None]
  - MARITAL PROBLEM [None]
  - TREATMENT NONCOMPLIANCE [None]
  - VICTIM OF HOMICIDE [None]
